FAERS Safety Report 18683594 (Version 2)
Quarter: 2021Q1

REPORT INFORMATION
  Report Type: Report from Study
  Country: FR (occurrence: FR)
  Receive Date: 20201230
  Receipt Date: 20210106
  Transmission Date: 20210419
  Serious: Yes (Other)
  Sender: FDA-Public Use
  Company Number: FR-ACACIA PHARMA LIMITED-2103642

PATIENT
  Age: 51 Year
  Sex: Female

DRUGS (11)
  1. BYFAVO [Suspect]
     Active Substance: REMIMAZOLAM BESYLATE
     Indication: PRODUCT USED FOR UNKNOWN INDICATION
     Route: 042
     Dates: start: 20201130, end: 20201202
  2. PANTOPRAZOLE [Concomitant]
     Active Substance: PANTOPRAZOLE
     Route: 042
  3. NIMODIPINE. [Concomitant]
     Active Substance: NIMODIPINE
     Route: 042
  4. HYDROCORTISONE. [Concomitant]
     Active Substance: HYDROCORTISONE
     Dates: start: 20201201
  5. AMOXICILLIN. [Concomitant]
     Active Substance: AMOXICILLIN
     Dates: start: 20201201
  6. SUFENTANIL [Concomitant]
     Active Substance: SUFENTANIL
     Route: 042
  7. NORADRENALINE [Concomitant]
     Active Substance: NOREPINEPHRINE
     Route: 042
  8. PROPOFOL. [Concomitant]
     Active Substance: PROPOFOL
     Route: 042
  9. SALINE SOLUTION [Concomitant]
     Active Substance: SODIUM CHLORIDE
     Route: 042
     Dates: start: 20201130
  10. PARACETAMOL [Concomitant]
     Active Substance: ACETAMINOPHEN
     Route: 042
  11. CISATRACURIUM. [Concomitant]
     Active Substance: CISATRACURIUM
     Dates: start: 20201202

REACTIONS (4)
  - Premature recovery from anaesthesia [Recovered/Resolved]
  - Administration site extravasation [Recovered/Resolved]
  - Vascular access site complication [Recovered/Resolved]
  - Product dispensing error [Recovered/Resolved]

NARRATIVE: CASE EVENT DATE: 20201130
